FAERS Safety Report 7358250-0 (Version None)
Quarter: 2011Q1

REPORT INFORMATION
  Report Type: 
  Country: None (occurrence: None)
  Receive Date: 20110317
  Receipt Date: 20110312
  Transmission Date: 20110831
  Serious: Yes (Other)
  Sender: FDA-Public Use
  Company Number: US-PFIZER INC-2011053669

PATIENT
  Sex: Male
  Weight: 91 kg

DRUGS (4)
  1. LISINOPRIL [Concomitant]
     Indication: HYPERTENSION
     Dosage: UNK
  2. ADVIL LIQUI-GELS [Suspect]
     Indication: ARTHRALGIA
     Dosage: 200 MG, TWO EVERY 5 HOURS
     Route: 048
  3. ADVIL LIQUI-GELS [Suspect]
     Indication: BACK PAIN
     Dosage: 200 MG, THREE EVERY 5 HOURS
     Route: 048
     Dates: start: 20110308
  4. ADVIL LIQUI-GELS [Suspect]
     Indication: ARTHRITIS
     Dosage: 200 MG, ONE

REACTIONS (2)
  - EAR DISORDER [None]
  - SINUS CONGESTION [None]
